FAERS Safety Report 23284641 (Version 1)
Quarter: 2023Q4

REPORT INFORMATION
  Report Type: Spontaneous
  Country: TW (occurrence: TW)
  Receive Date: 20231211
  Receipt Date: 20231211
  Transmission Date: 20240110
  Serious: Yes (Other)
  Sender: FDA-Public Use
  Company Number: TW-PFIZER INC-PV202300176196

PATIENT
  Age: 79 Year
  Sex: Female

DRUGS (2)
  1. XELJANZ XR [Suspect]
     Active Substance: TOFACITINIB CITRATE
     Indication: Rheumatoid arthritis
     Dosage: 11 MG, 1X/DAY
     Route: 048
     Dates: start: 20190715
  2. XELJANZ XR [Suspect]
     Active Substance: TOFACITINIB CITRATE
     Dosage: 11 MG, 1X/DAY
     Dates: start: 20231204

REACTIONS (5)
  - Urinary retention [Recovering/Resolving]
  - Haematuria [Recovering/Resolving]
  - Back pain [Recovering/Resolving]
  - Nerve compression [Recovering/Resolving]
  - Cystitis noninfective [Recovering/Resolving]

NARRATIVE: CASE EVENT DATE: 20230101
